FAERS Safety Report 8805360 (Version 1)
Quarter: 2012Q4

REPORT INFORMATION
  Report Type: 
  Country: US (occurrence: US)
  Receive Date: 20120924
  Receipt Date: 20120924
  Transmission Date: 20130627
  Serious: No
  Sender: FDA-Public Use
  Company Number: US-PFIZER INC-2012235984

PATIENT

DRUGS (1)
  1. LYRICA [Suspect]

REACTIONS (1)
  - Oedema [Unknown]
